FAERS Safety Report 8172184-3 (Version None)
Quarter: 2012Q1

REPORT INFORMATION
  Report Type: 
  Country: None (occurrence: None)
  Receive Date: 20120228
  Receipt Date: 20120221
  Transmission Date: 20120608
  Serious: Yes (Other)
  Sender: FDA-Public Use
  Company Number: US-ABBOTT-12P-163-0898263-00

PATIENT
  Sex: Female
  Weight: 67.646 kg

DRUGS (3)
  1. MULTI-VITAMIN [Concomitant]
     Indication: VITAMIN SUPPLEMENTATION
  2. LUPRON DEPOT [Suspect]
     Indication: ENDOMETRIOSIS
     Dates: start: 20111209
  3. CALCIUM W/MAGNESIUM [Concomitant]
     Indication: MINERAL SUPPLEMENTATION

REACTIONS (17)
  - INCREASED TENDENCY TO BRUISE [None]
  - WEIGHT INCREASED [None]
  - MUSCLE SPASMS [None]
  - COCCYDYNIA [None]
  - ABDOMINAL DISTENSION [None]
  - FEELING OF BODY TEMPERATURE CHANGE [None]
  - HEADACHE [None]
  - PALPITATIONS [None]
  - GAIT DISTURBANCE [None]
  - PAIN IN JAW [None]
  - ARTHRALGIA [None]
  - OEDEMA PERIPHERAL [None]
  - DYSURIA [None]
  - HYPOAESTHESIA [None]
  - SPINAL FRACTURE [None]
  - ALOPECIA [None]
  - ENDOMETRIOSIS [None]
